FAERS Safety Report 9807047 (Version 2)
Quarter: 2014Q1

REPORT INFORMATION
  Report Type: Spontaneous
  Country: GB (occurrence: GB)
  Receive Date: 20140110
  Receipt Date: 20140306
  Transmission Date: 20141002
  Serious: Yes (Other)
  Sender: FDA-Public Use
  Company Number: GB-JNJFOC-20140102178

PATIENT
  Sex: Male

DRUGS (1)
  1. NICORETTE FRESHMINT 2MG GUM [Suspect]
     Indication: SMOKING CESSATION THERAPY
     Route: 048

REACTIONS (4)
  - Dependence [Unknown]
  - Ulcer [Unknown]
  - Gastric disorder [Unknown]
  - Irritability [Unknown]
